FAERS Safety Report 23612179 (Version 3)
Quarter: 2024Q3

REPORT INFORMATION
  Report Type: Spontaneous
  Country: US (occurrence: US)
  Receive Date: 20240308
  Receipt Date: 20240809
  Transmission Date: 20241016
  Serious: Yes (Hospitalization)
  Sender: DAIICHI
  Company Number: US-DSJP-DSU-2024-110271

PATIENT
  Sex: Female

DRUGS (1)
  1. VANFLYTA [Suspect]
     Active Substance: QUIZARTINIB DIHYDROCHLORIDE
     Indication: Acute myeloid leukaemia
     Dosage: 35.4 MG, QD (FOR 14 DAYS AND 14 DAYS OFF)
     Route: 048
     Dates: start: 20240113

REACTIONS (2)
  - Stem cell transplant [Recovered/Resolved]
  - Pyrexia [Recovered/Resolved]
